FAERS Safety Report 19811273 (Version 1)
Quarter: 2021Q3

REPORT INFORMATION
  Report Type: Spontaneous
  Country: US (occurrence: US)
  Receive Date: 20210909
  Receipt Date: 20210909
  Transmission Date: 20211014
  Serious: No
  Sender: FDA-Public Use
  Company Number: US-APOTEX-2021AP042371

PATIENT
  Sex: Female

DRUGS (1)
  1. FENTANYL TRANSDERMAL SYSTEM [Suspect]
     Active Substance: FENTANYL
     Indication: PRODUCT USED FOR UNKNOWN INDICATION
     Dosage: UNK, 1/48 HOURS, (COMPLAINT MATERIAL?65945, PACK SIZE?5 PATCH)
     Route: 065

REACTIONS (4)
  - Feeling abnormal [Unknown]
  - Product adhesion issue [Unknown]
  - Drug ineffective [Unknown]
  - Irritability [Unknown]
